FAERS Safety Report 11623875 (Version 1)
Quarter: 2015Q4

REPORT INFORMATION
  Report Type: Spontaneous
  Country: US (occurrence: US)
  Receive Date: 20151013
  Receipt Date: 20151013
  Transmission Date: 20160304
  Serious: No
  Sender: FDA-Public Use
  Company Number: US-JNJFOC-20150916968

PATIENT
  Sex: Female

DRUGS (4)
  1. TYLENOL EXTRA STRENGTH [Suspect]
     Active Substance: ACETAMINOPHEN
     Indication: MYALGIA
     Dosage: 2 CAPLETS EVERY 6 HOURS EVERY DAY FOR YEARS
     Route: 048
  2. TYLENOL EXTRA STRENGTH [Suspect]
     Active Substance: ACETAMINOPHEN
     Indication: FIBROMATOSIS
     Dosage: 2 CAPLETS EVERY 6 HOURS EVERY DAY FOR YEARS
     Route: 048
  3. TYLENOL EXTRA STRENGTH [Suspect]
     Active Substance: ACETAMINOPHEN
     Indication: BACK PAIN
     Dosage: 2 CAPLETS EVERY 6 HOURS EVERY DAY FOR YEARS
     Route: 048
  4. ANTIBIOTIC [Suspect]
     Active Substance: UNSPECIFIED INGREDIENT
     Indication: INFECTION
     Route: 045

REACTIONS (4)
  - Gastric disorder [Recovering/Resolving]
  - Erythema [Recovering/Resolving]
  - Product use issue [Unknown]
  - Intentional product use issue [Unknown]
